FAERS Safety Report 19053789 (Version 1)
Quarter: 2021Q1

REPORT INFORMATION
  Report Type: Spontaneous
  Country: CA (occurrence: CA)
  Receive Date: 20210325
  Receipt Date: 20210325
  Transmission Date: 20210420
  Serious: Yes (Hospitalization)
  Sender: FDA-Public Use
  Company Number: CA-LUPIN PHARMACEUTICALS INC.-2021-03675

PATIENT
  Age: 30 Year
  Sex: Male

DRUGS (4)
  1. RIFAMPIN. [Suspect]
     Active Substance: RIFAMPIN
     Indication: ENDOCARDITIS
     Dosage: 300 MILLIGRAM, BID
     Route: 048
  2. WARFARIN [Interacting]
     Active Substance: WARFARIN
     Dosage: 231 MILLIGRAM, WEEKLY
     Route: 048
  3. WARFARIN [Interacting]
     Active Substance: WARFARIN
     Indication: AORTIC VALVE REPLACEMENT
     Dosage: 75 MILLIGRAM, WEEKLY
     Route: 048
  4. WARFARIN [Interacting]
     Active Substance: WARFARIN
     Dosage: UNK, DOSE GRADUALLY DECREASED
     Route: 048

REACTIONS (2)
  - Anticoagulation drug level decreased [Recovered/Resolved]
  - Drug interaction [Unknown]
